FAERS Safety Report 8949156 (Version 1)
Quarter: 2012Q4

REPORT INFORMATION
  Report Type: 
  Country: FR (occurrence: FR)
  Receive Date: 20121206
  Receipt Date: 20121206
  Transmission Date: 20130627
  Serious: Yes (Hospitalization)
  Sender: FDA-Public Use
  Company Number: FR-BAYER-2012-125877

PATIENT
  Age: 68 Year
  Sex: Male

DRUGS (4)
  1. NEXAVAR [Suspect]
     Indication: HEPATIC ADENOCARCINOMA
     Dosage: 800 mg, QD
     Route: 048
     Dates: start: 20120820, end: 20120924
  2. VIDAZA [Suspect]
     Indication: MYELODYSPLASIA
     Dosage: 79 mg, 5 days per month
     Route: 058
     Dates: start: 20090323
  3. LASILIX [Concomitant]
     Dosage: 40 mg, QD, longterm
     Route: 048
  4. INEXIUM [Concomitant]
     Dosage: 1 DF, QD, longterm
     Route: 048

REACTIONS (2)
  - Cardiac failure [Not Recovered/Not Resolved]
  - Atrial fibrillation [Not Recovered/Not Resolved]
